FAERS Safety Report 16532474 (Version 1)
Quarter: 2019Q3

REPORT INFORMATION
  Report Type: Spontaneous
  Country: US (occurrence: US)
  Receive Date: 20190705
  Receipt Date: 20190705
  Transmission Date: 20191004
  Serious: No
  Sender: FDA-Public Use
  Company Number: US-BAYER-2019-126481

PATIENT
  Age: 55 Year
  Sex: Male
  Weight: 122 kg

DRUGS (3)
  1. ALEVE [Suspect]
     Active Substance: NAPROXEN SODIUM
     Indication: PAIN
     Dosage: 1 DF, QD
     Route: 048
     Dates: start: 201906
  2. CHOLESTEROL MANAGER [Concomitant]
  3. HERBAL WATER PILL [Concomitant]
     Dosage: UNK

REACTIONS (2)
  - Labelled drug-disease interaction medication error [None]
  - Incorrect product administration duration [Unknown]

NARRATIVE: CASE EVENT DATE: 201906
